FAERS Safety Report 17135065 (Version 2)
Quarter: 2019Q4

REPORT INFORMATION
  Report Type: Spontaneous
  Country: US (occurrence: US)
  Receive Date: 20191210
  Receipt Date: 20191230
  Transmission Date: 20200122
  Serious: Yes (Other)
  Sender: FDA-Public Use
  Company Number: US-PFIZER INC-2019526450

PATIENT
  Age: 56 Year
  Sex: Female
  Weight: 53.5 kg

DRUGS (3)
  1. LIDOCAINE HCL [Suspect]
     Active Substance: LIDOCAINE HYDROCHLORIDE
     Dosage: 50 MG/ML
  2. LIDOCAINE HCL [Suspect]
     Active Substance: LIDOCAINE HYDROCHLORIDE
     Indication: PAIN
     Dosage: UNK (250MG/50ML VIAL)
  3. LIDOCAINE HCL [Suspect]
     Active Substance: LIDOCAINE HYDROCHLORIDE
     Dosage: 500 MG, MONTHLY
     Route: 042

REACTIONS (5)
  - Loss of consciousness [Unknown]
  - Product use in unapproved indication [Unknown]
  - Hypotension [Unknown]
  - Off label use [Unknown]
  - Bradycardia [Unknown]
